FAERS Safety Report 9858169 (Version 1)
Quarter: 2014Q1

REPORT INFORMATION
  Report Type: Spontaneous
  Country: US (occurrence: None)
  Receive Date: 20140129
  Receipt Date: 20140129
  Transmission Date: 20141002
  Serious: Yes (Other)
  Sender: FDA-Public Use
  Company Number: None

PATIENT
  Age: 56 Year
  Sex: 0
  Weight: 90.9 kg

DRUGS (1)
  1. RISPERDAL [Suspect]

REACTIONS (1)
  - Trismus [None]
